FAERS Safety Report 7243773-5 (Version None)
Quarter: 2011Q1

REPORT INFORMATION
  Report Type: 
  Country: None (occurrence: None)
  Receive Date: 20110125
  Receipt Date: 20110118
  Transmission Date: 20110831
  Serious: No
  Sender: FDA-Public Use
  Company Number: US-PFIZER INC-2010151774

PATIENT
  Sex: Female
  Weight: 89.342 kg

DRUGS (8)
  1. LEVOTHYROXINE [Concomitant]
     Dosage: UNK
  2. MULTI-VITAMINS [Concomitant]
     Dosage: UNK
  3. VITAMIN D [Concomitant]
     Dosage: UNK
  4. FISH OIL [Concomitant]
     Dosage: UNK
  5. XALATAN [Suspect]
     Indication: INTRAOCULAR PRESSURE INCREASED
  6. GUAIFENESIN W/DEXTROMETHORPHAN [Concomitant]
     Indication: DRY MOUTH
     Dosage: UNK
  7. XALATAN [Suspect]
     Indication: GLAUCOMA
     Dosage: UNK
     Route: 047
     Dates: start: 20101001
  8. ESTRADIOL [Concomitant]
     Dosage: UNK

REACTIONS (3)
  - FOREIGN BODY SENSATION IN EYES [None]
  - VISION BLURRED [None]
  - EYE PRURITUS [None]
